FAERS Safety Report 5576356-3 (Version None)
Quarter: 2007Q4

REPORT INFORMATION
  Report Type: 
  Country: None (occurrence: None)
  Receive Date: 20071228
  Receipt Date: 20071217
  Transmission Date: 20080405
  Serious: Yes (Other)
  Sender: FDA-Public Use
  Company Number: US-BAYER-200716539NA

PATIENT
  Sex: Male

DRUGS (7)
  1. LEVITRA [Suspect]
     Indication: ERECTILE DYSFUNCTION
     Route: 048
  2. LIPITOR [Concomitant]
  3. ANTIHYPERTENSIVE [Concomitant]
  4. VITAMINS [Concomitant]
  5. HERBAL MEDICINES [Concomitant]
  6. DIABETES MEDICINE [Concomitant]
  7. POSSIBLY GLUCOTROL [Concomitant]

REACTIONS (1)
  - BLINDNESS UNILATERAL [None]
